FAERS Safety Report 13256209 (Version 1)
Quarter: 2017Q1

REPORT INFORMATION
  Report Type: Spontaneous
  Country: US (occurrence: US)
  Receive Date: 20170220
  Receipt Date: 20170220
  Transmission Date: 20170428
  Serious: No
  Sender: FDA-Public Use
  Company Number: None

PATIENT
  Age: 31 Year
  Sex: Female
  Weight: 59.47 kg

DRUGS (1)
  1. NALOXONE [Suspect]
     Active Substance: NALOXONE
     Route: 048

REACTIONS (5)
  - Skin disorder [None]
  - Pruritus [None]
  - Paraesthesia [None]
  - Swollen tongue [None]
  - Urticaria [None]
